FAERS Safety Report 5463814-5 (Version None)
Quarter: 2007Q3

REPORT INFORMATION
  Report Type: 
  Country: None (occurrence: None)
  Receive Date: 20070919
  Receipt Date: 20070904
  Transmission Date: 20080115
  Serious: Yes (Other)
  Sender: FDA-Public Use
  Company Number: 2007AP000996

PATIENT
  Age: 50 Year
  Sex: Female

DRUGS (7)
  1. CLOPIDOGREL [Suspect]
     Indication: MYOCARDIAL INFARCTION
     Dosage: 75 MG;QD;PO
     Route: 048
     Dates: start: 20070215, end: 20070501
  2. CLONAZEPAM [Concomitant]
  3. PRAVASTATIN [Concomitant]
  4. EZETIMIBE [Concomitant]
  5. ASPIRIN [Concomitant]
  6. METOPROLOL SUCCINATE [Concomitant]
  7. LISINOPRIL [Concomitant]

REACTIONS (5)
  - ASTHENIA [None]
  - GASTROENTERITIS [None]
  - HAEMATEMESIS [None]
  - HEADACHE [None]
  - PHARMACEUTICAL PRODUCT COMPLAINT [None]
